FAERS Safety Report 5139079-0 (Version None)
Quarter: 2006Q4

REPORT INFORMATION
  Report Type: 
  Country: None (occurrence: None)
  Receive Date: 20061030
  Receipt Date: 20060616
  Transmission Date: 20070319
  Serious: No
  Sender: FDA-Public Use
  Company Number: US-GLAXOSMITHKLINE-A0609499A

PATIENT
  Age: 59 Year
  Sex: Female

DRUGS (9)
  1. ADVAIR HFA [Suspect]
     Indication: ASTHMA
     Route: 055
     Dates: start: 20060516
  2. LORAZEPAM [Concomitant]
  3. HALDOL [Concomitant]
  4. PRANOLOL [Concomitant]
  5. UNSPECIFIED MEDICATION [Concomitant]
  6. ALTACE [Concomitant]
  7. GLUCOPHAGE [Concomitant]
  8. PREMARIN [Concomitant]
  9. NYSTATIN [Concomitant]

REACTIONS (3)
  - MOUTH ULCERATION [None]
  - ORAL PAIN [None]
  - STOMATITIS [None]
